FAERS Safety Report 19746090 (Version 1)
Quarter: 2021Q3

REPORT INFORMATION
  Report Type: Spontaneous
  Country: US (occurrence: US)
  Receive Date: 20210825
  Receipt Date: 20210825
  Transmission Date: 20211014
  Serious: No
  Sender: FDA-Public Use
  Company Number: US-BAUSCH-BL-2021-026724

PATIENT
  Age: 38 Year
  Sex: Female

DRUGS (1)
  1. WELLBUTRIN XL [Suspect]
     Active Substance: BUPROPION HYDROCHLORIDE
     Indication: DEPRESSION
     Dosage: 16 YEARS
     Route: 048

REACTIONS (3)
  - Product dose omission in error [Unknown]
  - Thirst [Unknown]
  - Extra dose administered [Unknown]

NARRATIVE: CASE EVENT DATE: 202107
